FAERS Safety Report 8485797 (Version 7)
Quarter: 2013Q3

REPORT INFORMATION
  Report Type: Report from Study
  Country: US (occurrence: US)
  Receive Date: 20120330
  Receipt Date: 20130909
  Transmission Date: 20140515
  Serious: Yes (Hospitalization, Other)
  Sender: FDA-Public Use
  Company Number: US-ELI_LILLY_AND_COMPANY-US201111007561

PATIENT
  Age: 80 Year
  Sex: Female

DRUGS (12)
  1. TERIPARATIDE [Suspect]
     Indication: OSTEOPOROSIS
     Dosage: 20 UG, QD
     Dates: start: 201111
  2. TERIPARATIDE [Suspect]
     Dosage: 20 UG, QD
     Dates: end: 20110401
  3. TERIPARATIDE [Suspect]
     Dosage: 20 UG, UNK
     Dates: start: 20120601
  4. TERIPARATIDE [Suspect]
     Dosage: 20 UG, QD
     Route: 058
     Dates: start: 201111
  5. TERIPARATIDE [Suspect]
     Dosage: 20 UG, QD
     Dates: start: 201111
  6. COUMADIN [Concomitant]
     Dosage: 3 MG, UNK
  7. CALCIUM [Concomitant]
  8. STOOL SOFTENER [Concomitant]
     Indication: CONSTIPATION
     Dosage: UNK
  9. NORCO [Concomitant]
     Indication: PAIN
  10. LISINOPRIL [Concomitant]
  11. DIAZEPAM [Concomitant]
  12. VITAMIN B12 [Concomitant]

REACTIONS (30)
  - Neoplasm [Not Recovered/Not Resolved]
  - Rectal haemorrhage [Unknown]
  - Diverticulitis [Unknown]
  - Limb injury [Unknown]
  - Chondropathy [Unknown]
  - Chondropathy [Unknown]
  - Chondropathy [Unknown]
  - Back pain [Not Recovered/Not Resolved]
  - Dysstasia [Unknown]
  - Musculoskeletal disorder [Unknown]
  - Choking [Unknown]
  - Blood test abnormal [Not Recovered/Not Resolved]
  - Decreased appetite [Unknown]
  - Injection site haemorrhage [Not Recovered/Not Resolved]
  - Local swelling [Unknown]
  - Hearing impaired [Unknown]
  - Feeling abnormal [Unknown]
  - Mobility decreased [Unknown]
  - Pain in extremity [Unknown]
  - Arthralgia [Not Recovered/Not Resolved]
  - Asthenia [Unknown]
  - Arthralgia [Not Recovered/Not Resolved]
  - Injection site bruising [Unknown]
  - Nausea [Unknown]
  - Large intestine polyp [Unknown]
  - Joint range of motion decreased [Unknown]
  - Spinal disorder [Unknown]
  - Chondropathy [Unknown]
  - Spinal fracture [Unknown]
  - Body height decreased [Unknown]
